FAERS Safety Report 6959542-7 (Version None)
Quarter: 2010Q3

REPORT INFORMATION
  Report Type: 
  Country: None (occurrence: None)
  Receive Date: 20100827
  Receipt Date: 20090609
  Transmission Date: 20110219
  Serious: Yes (Other)
  Sender: FDA-Public Use
  Company Number: 001017

PATIENT
  Sex: Female

DRUGS (3)
  1. VIMPAT [Suspect]
     Indication: CONVULSION
     Dosage: 200 MG BID ORAL, DOSE REDUCED TO 150/200 MG ORAL
     Route: 048
     Dates: end: 20090415
  2. VIMPAT [Suspect]
     Indication: CONVULSION
     Dosage: 200 MG BID ORAL, DOSE REDUCED TO 150/200 MG ORAL
     Route: 048
     Dates: start: 20090415
  3. ZONISAMIDE [Concomitant]

REACTIONS (3)
  - FEELING ABNORMAL [None]
  - HEADACHE [None]
  - POLLAKIURIA [None]
